FAERS Safety Report 17238024 (Version 1)
Quarter: 2020Q1

REPORT INFORMATION
  Report Type: Spontaneous
  Country: US (occurrence: US)
  Receive Date: 20200106
  Receipt Date: 20200106
  Transmission Date: 20200409
  Serious: No
  Sender: FDA-Public Use
  Company Number: US-PACIRA-201900094

PATIENT
  Age: 29 Year
  Weight: 73 kg

DRUGS (4)
  1. HENRY SCHEIN [Concomitant]
     Dosage: LIDOCAINE HCL 2% WITH EPINEPHRINE 1:100,000; ONE CARPULE
  2. COOK WAITE [Concomitant]
     Dosage: MARCAINE 0.5% (9 MG) WITH EPINEPHRINE 1:200,000; ONE CARPULE
  3. EXPAREL [Suspect]
     Active Substance: BUPIVACAINE
     Indication: TOOTH EXTRACTION
     Dosage: UNKNOWN
     Dates: start: 20190312, end: 20190312
  4. MARCAINE [Concomitant]
     Active Substance: BUPIVACAINE HYDROCHLORIDE
     Dates: start: 20190308, end: 20190308

REACTIONS (3)
  - Therapeutic product effect variable [Recovered/Resolved]
  - Off label use [Unknown]
  - Oral pain [Unknown]

NARRATIVE: CASE EVENT DATE: 20190312
